FAERS Safety Report 6734118-5 (Version None)
Quarter: 2010Q2

REPORT INFORMATION
  Report Type: 
  Country: None (occurrence: None)
  Receive Date: 20100520
  Receipt Date: 20100510
  Transmission Date: 20101027
  Serious: Yes (Hospitalization)
  Sender: FDA-Public Use
  Company Number: DE-NAPPMUNDI-DEU-2010-0006241

PATIENT
  Age: 70 Year
  Sex: Male

DRUGS (19)
  1. SEVREDOL 10 MG [Suspect]
     Indication: CANCER PAIN
     Dosage: 10 MG, Q8H
     Route: 048
     Dates: start: 20100101, end: 20100311
  2. CODEINE SULFATE [Interacting]
     Indication: CANCER PAIN
     Dosage: 40 GTT, TID
     Route: 048
     Dates: start: 20100101, end: 20100311
  3. FENTANYL [Interacting]
     Indication: CANCER PAIN
     Dosage: 25 MCG, Q1H
     Route: 048
     Dates: start: 20091201, end: 20100311
  4. TORSEMIDE [Interacting]
     Indication: HYPERTENSION
     Dosage: 20 MG, BID
     Dates: start: 20000101
  5. DICLOFENAC [Interacting]
     Indication: OSTEOARTHRITIS
     Dosage: UNK TABLET, UNK
     Route: 048
  6. ATACAND [Concomitant]
     Indication: CARDIAC FAILURE
     Dosage: 8 MG, UNK
     Route: 048
     Dates: start: 20080101
  7. ATACAND [Concomitant]
     Dosage: 16 MG, PM
     Route: 048
  8. ASPIRIN [Concomitant]
     Indication: CORONARY ARTERY DISEASE
     Dosage: 100 MG, DAILY
     Route: 048
     Dates: start: 19980101
  9. LOCOL [Concomitant]
     Indication: HYPERLIPIDAEMIA
     Dosage: 80 MG, DAILY
     Route: 048
     Dates: start: 19890101
  10. MAYCOR NITROSPRAY [Concomitant]
     Indication: CORONARY ARTERY DISEASE
     Dosage: 0.8 MG, UNK
     Route: 048
     Dates: start: 19980101
  11. BONDIOL [Concomitant]
     Indication: RENAL OSTEODYSTROPHY
     Dosage: 0.25 UG, DAILY
     Route: 048
     Dates: start: 20080101
  12. NEORECORMON [Concomitant]
     Indication: NEPHROGENIC ANAEMIA
     Dosage: 4000 IU, 1/WEEK
     Route: 058
     Dates: start: 20080101
  13. ALLOPURINOL [Concomitant]
  14. L-THYROX [Concomitant]
  15. BISOPROLOL FUMARATE [Concomitant]
  16. PANTOPRAZOL [Concomitant]
  17. ACC                                /00082801/ [Concomitant]
  18. DEXAMETHASON                       /00016002/ [Concomitant]
  19. NOVAMINSULFON [Concomitant]

REACTIONS (5)
  - GENERAL PHYSICAL HEALTH DETERIORATION [None]
  - OVERDOSE [None]
  - PNEUMONIA [None]
  - RENAL FAILURE ACUTE [None]
  - SOMNOLENCE [None]
